FAERS Safety Report 5814733-3 (Version None)
Quarter: 2008Q3

REPORT INFORMATION
  Report Type: 
  Country: None (occurrence: None)
  Receive Date: 20080718
  Receipt Date: 20080310
  Transmission Date: 20090109
  Serious: No
  Sender: FDA-Public Use
  Company Number: US-KINGPHARMUSA00001-K200800304

PATIENT

DRUGS (7)
  1. LEVOXYL [Suspect]
     Dosage: 88 MCG, QD
     Route: 048
     Dates: start: 20000101, end: 20071127
  2. LEVOXYL [Suspect]
     Dosage: 100 MCG, UNK
     Route: 048
     Dates: start: 20071127
  3. LEVOXYL [Suspect]
     Dosage: 88 MCG, UNK
     Route: 048
     Dates: end: 20080101
  4. VYTORIN [Concomitant]
     Indication: HYPERCHOLESTEROLAEMIA
  5. BENZODIAZIPINES [Concomitant]
     Indication: NERVOUS SYSTEM DISORDER
  6. VALIUM [Concomitant]
  7. UNSPECIFIED SLEEPING AID [Suspect]

REACTIONS (19)
  - AGITATION [None]
  - BURNING SENSATION MUCOSAL [None]
  - CONVULSION [None]
  - DIZZINESS [None]
  - DRUG INEFFECTIVE [None]
  - DRUG INTERACTION [None]
  - HEADACHE [None]
  - HYPERHIDROSIS [None]
  - HYPERSENSITIVITY [None]
  - INSOMNIA [None]
  - LOSS OF CONSCIOUSNESS [None]
  - MUSCLE SPASMS [None]
  - MYALGIA [None]
  - PARAESTHESIA [None]
  - SKIN ODOUR ABNORMAL [None]
  - SLEEP DISORDER [None]
  - TINNITUS [None]
  - VERTIGO [None]
  - WEIGHT INCREASED [None]
